FAERS Safety Report 16020110 (Version 1)
Quarter: 2019Q1

REPORT INFORMATION
  Report Type: Report from Study
  Country: US (occurrence: US)
  Receive Date: 20190228
  Receipt Date: 20190228
  Transmission Date: 20190418
  Serious: Yes (Hospitalization)
  Sender: FDA-Public Use
  Company Number: US-BIOGEN-2019BI00702209

PATIENT
  Sex: Female
  Weight: 81.27 kg

DRUGS (1)
  1. TECFIDERA [Suspect]
     Active Substance: DIMETHYL FUMARATE
     Indication: MULTIPLE SCLEROSIS
     Route: 048
     Dates: start: 20140515

REACTIONS (10)
  - Musculoskeletal disorder [Not Recovered/Not Resolved]
  - Back disorder [Not Recovered/Not Resolved]
  - Swelling face [Recovered/Resolved]
  - Lip swelling [Recovered/Resolved]
  - Product dose omission [Not Recovered/Not Resolved]
  - Pharyngeal oedema [Recovered/Resolved]
  - Abdominal pain [Not Recovered/Not Resolved]
  - Hypertonic bladder [Recovered/Resolved]
  - Fatigue [Not Recovered/Not Resolved]
  - Back pain [Not Recovered/Not Resolved]
